FAERS Safety Report 5285387-2 (Version None)
Quarter: 2007Q1

REPORT INFORMATION
  Report Type: 
  Country: None (occurrence: None)
  Receive Date: 20070328
  Receipt Date: 20070313
  Transmission Date: 20070707
  Serious: Yes (Life-Threatening, Hospitalization)
  Sender: FDA-Public Use
  Company Number: 238788

PATIENT
  Age: 77 Year
  Sex: Male

DRUGS (2)
  1. AVASTIN [Suspect]
     Indication: COLORECTAL CANCER
  2. IRINOTECAN HCL [Suspect]
     Indication: COLORECTAL CANCER

REACTIONS (8)
  - DIARRHOEA [None]
  - MELAENA [None]
  - PERFORMANCE STATUS DECREASED [None]
  - PERIPHERAL CIRCULATORY FAILURE [None]
  - PNEUMOCYSTIS JIROVECI INFECTION [None]
  - TUMOUR PERFORATION [None]
  - ULCER [None]
  - VOMITING [None]
